FAERS Safety Report 7765755-7 (Version None)
Quarter: 2011Q3

REPORT INFORMATION
  Report Type: 
  Country: None (occurrence: None)
  Receive Date: 20110921
  Receipt Date: 20110907
  Transmission Date: 20111222
  Serious: Yes (Death, Hospitalization)
  Sender: FDA-Public Use
  Company Number: GB-BAYER-2011-082399

PATIENT
  Sex: Female

DRUGS (5)
  1. ACETAMINOPHEN [Suspect]
     Indication: WOUND COMPLICATION
     Dosage: 1 G, QID
     Route: 048
  2. FLOXACILLIN SODIUM [Suspect]
     Indication: WOUND SECRETION
     Dosage: 500 MG, QID
     Route: 048
  3. CEFUROXIME [Concomitant]
     Indication: ANTIBIOTIC PROPHYLAXIS
     Dosage: 1.5 G, UNK, 3 DOSES
     Route: 042
  4. ACETAMINOPHEN [Suspect]
     Indication: WOUND INFECTION
  5. FLOXACILLIN SODIUM [Suspect]
     Indication: WOUND INFECTION STAPHYLOCOCCAL
     Dosage: 1 G, QID
     Route: 042

REACTIONS (4)
  - METABOLIC ACIDOSIS [None]
  - HYPOKALAEMIA [None]
  - ATRIAL FIBRILLATION [None]
  - PYROGLUTAMATE INCREASED [None]
